FAERS Safety Report 19864838 (Version 1)
Quarter: 2021Q3

REPORT INFORMATION
  Report Type: Spontaneous
  Country: DE (occurrence: DE)
  Receive Date: 20210922
  Receipt Date: 20210922
  Transmission Date: 20211014
  Serious: Yes (Other)
  Sender: FDA-Public Use
  Company Number: DE-AUROBINDO-AUR-APL-2021-039234

PATIENT
  Age: 34 Year
  Sex: Female
  Weight: 80 kg

DRUGS (2)
  1. ALPRAZOLAM. [Suspect]
     Active Substance: ALPRAZOLAM
     Indication: ANXIETY DISORDER
     Dosage: UNK(2 [MG/D ])
     Route: 048
     Dates: start: 20191225
  2. CITALOPRAM [Suspect]
     Active Substance: CITALOPRAM HYDROBROMIDE
     Indication: DEPRESSION
     Dosage: UNK(40 [MG/D ])
     Route: 048
     Dates: start: 20191225

REACTIONS (2)
  - Exposure during pregnancy [Unknown]
  - Stillbirth [Recovered/Resolved]
